FAERS Safety Report 18154315 (Version 3)
Quarter: 2020Q3

REPORT INFORMATION
  Report Type: Spontaneous
  Country: CA (occurrence: CA)
  Receive Date: 20200817
  Receipt Date: 20200821
  Transmission Date: 20201103
  Serious: Yes (Other)
  Sender: FDA-Public Use
  Company Number: CA-CELLTRION INC.-2020CA024363

PATIENT

DRUGS (4)
  1. SOLU?CORTEF [Concomitant]
     Active Substance: HYDROCORTISONE SODIUM SUCCINATE
     Dosage: 200 MG
     Route: 042
     Dates: start: 20200807
  2. INFLECTRA [Suspect]
     Active Substance: INFLIXIMAB-DYYB
     Indication: COLITIS ULCERATIVE
     Dosage: 300 MG Q 0, 2, 6, WEEKS, THEN EVERY 8 WEEKS
     Route: 042
     Dates: start: 20200724, end: 20200807
  3. INFLECTRA [Suspect]
     Active Substance: INFLIXIMAB-DYYB
     Dosage: 300 MG Q 0, 2, 6, WEEKS, THEN EVERY 8 WEEKS
     Route: 042
     Dates: start: 20200807
  4. FLUNARIZINE [Concomitant]
     Active Substance: FLUNARIZINE
     Dosage: UNK
     Route: 065

REACTIONS (18)
  - Anaphylactic reaction [Unknown]
  - Swelling face [Unknown]
  - Syncope [Unknown]
  - Throat irritation [Unknown]
  - Bowel movement irregularity [Unknown]
  - Respiratory rate increased [Unknown]
  - Abdominal pain upper [Unknown]
  - Back pain [Unknown]
  - Body temperature increased [Unknown]
  - Palpitations [Unknown]
  - Blood pressure increased [Unknown]
  - Nervousness [Unknown]
  - Nausea [Unknown]
  - Heart rate increased [Unknown]
  - Off label use [Unknown]
  - Pallor [Not Recovered/Not Resolved]
  - Asthenia [Unknown]
  - Intentional product use issue [Unknown]

NARRATIVE: CASE EVENT DATE: 20200724
